FAERS Safety Report 5252791-8 (Version None)
Quarter: 2007Q1

REPORT INFORMATION
  Report Type: 
  Country: None (occurrence: None)
  Receive Date: 20070301
  Receipt Date: 20070103
  Transmission Date: 20070707
  Serious: No
  Sender: FDA-Public Use
  Company Number: US-GLAXOSMITHKLINE-A0630407A

PATIENT
  Age: 50 Year
  Sex: Female

DRUGS (10)
  1. LAMICTAL [Suspect]
     Indication: BIPOLAR DISORDER
     Dosage: 25MG PER DAY
     Route: 048
     Dates: start: 20061127, end: 20061204
  2. CYMBALTA [Concomitant]
  3. PROZAC [Concomitant]
  4. AVALIDE [Concomitant]
  5. NEXIUM [Concomitant]
  6. VALTREX [Concomitant]
  7. ZYRTEC [Concomitant]
  8. ADVAIR DISKUS 100/50 [Concomitant]
  9. RESTORIL [Concomitant]
  10. XANAX [Concomitant]

REACTIONS (3)
  - PRURITUS [None]
  - RASH [None]
  - RASH PAPULAR [None]
